FAERS Safety Report 8675781 (Version 3)
Quarter: 2012Q4

REPORT INFORMATION
  Report Type: 
  Country: DE (occurrence: DE)
  Receive Date: 20120720
  Receipt Date: 20121214
  Transmission Date: 20130627
  Serious: Yes (Hospitalization, Other)
  Sender: FDA-Public Use
  Company Number: DE-BRISTOL-MYERS SQUIBB COMPANY-16648529

PATIENT
  Age: 32 Year
  Sex: Male

DRUGS (2)
  1. ABILIFY TABS [Suspect]
     Indication: SCHIZOPHRENIA
     Dosage: Dose incre:15mg/d,10May11-27Jun11:10mg,28Jun11-22May12:15mg,Last dose 22May2012.
     Route: 048
     Dates: start: 20110510
  2. AMISULPRIDE [Suspect]
     Indication: SCHIZOPHRENIA
     Dosage: Mid Apr dse added 2steps:150mg,300mg.Restart again,26Ot11-26Ap12;150mg
27Ap12-16My12:150-0-150,
     Dates: start: 20111026

REACTIONS (2)
  - Cholelithiasis [Unknown]
  - Liver function test abnormal [Recovering/Resolving]
